FAERS Safety Report 24768264 (Version 1)
Quarter: 2024Q4

REPORT INFORMATION
  Report Type: Spontaneous
  Country: AU (occurrence: AU)
  Receive Date: 20241223
  Receipt Date: 20241223
  Transmission Date: 20250115
  Serious: Yes (Other)
  Sender: ORGANON
  Company Number: AU-MYLANLABS-2024M1102680

PATIENT
  Age: 22 Year
  Sex: Male

DRUGS (4)
  1. MONTELUKAST SODIUM [Suspect]
     Active Substance: MONTELUKAST\MONTELUKAST SODIUM
     Indication: Anaphylactic reaction
     Dosage: 10 MILLIGRAM, QD
  2. CETIRIZINE HYDROCHLORIDE [Suspect]
     Active Substance: CETIRIZINE HYDROCHLORIDE
     Indication: Anaphylactic reaction
     Dosage: 20 MILLIGRAM, BID
  3. NIZATIDINE [Suspect]
     Active Substance: NIZATIDINE
     Indication: Anaphylactic reaction
     Dosage: 300 MILLIGRAM, BID
  4. OMALIZUMAB [Suspect]
     Active Substance: OMALIZUMAB
     Indication: Anaphylactic reaction
     Dosage: 300 MILLIGRAM, Q3W

REACTIONS (2)
  - Drug ineffective [Unknown]
  - Off label use [Unknown]
